FAERS Safety Report 4916883-2 (Version None)
Quarter: 2006Q1

REPORT INFORMATION
  Report Type: 
  Country: None (occurrence: None)
  Receive Date: 20060113
  Receipt Date: 20051019
  Transmission Date: 20060701
  Serious: No
  Sender: FDA-Public Use
  Company Number: 2005SP002425

PATIENT
  Age: 40 Year
  Sex: Female
  Weight: 68.0396 kg

DRUGS (4)
  1. LUNESTA [Suspect]
     Indication: INSOMNIA
     Dosage: HS;ORAL
     Route: 048
     Dates: start: 20050701, end: 20050801
  2. HYDROCHLOROTHIAZIDE W/TRIAMTERENE [Concomitant]
  3. SYNTHROID [Concomitant]
  4. PROZAC [Concomitant]

REACTIONS (1)
  - PARADOXICAL DRUG REACTION [None]
